FAERS Safety Report 12539620 (Version 1)
Quarter: 2016Q3

REPORT INFORMATION
  Report Type: Spontaneous
  Country: US (occurrence: None)
  Receive Date: 20160707
  Receipt Date: 20160707
  Transmission Date: 20161109
  Serious: Yes (Life-Threatening, Hospitalization)
  Sender: FDA-Public Use
  Company Number: None

PATIENT
  Age: 72 Year
  Sex: Female
  Weight: 61.3 kg

DRUGS (1)
  1. EXPAREL [Suspect]
     Active Substance: BUPIVACAINE
     Indication: KNEE ARTHROPLASTY
     Route: 058
     Dates: start: 20160705, end: 20160705

REACTIONS (3)
  - Cardiac arrest [None]
  - Unresponsive to stimuli [None]
  - Toxicity to various agents [None]

NARRATIVE: CASE EVENT DATE: 20160705
